FAERS Safety Report 14553848 (Version 1)
Quarter: 2018Q1

REPORT INFORMATION
  Report Type: Spontaneous
  Country: US (occurrence: US)
  Receive Date: 20180216
  Receipt Date: 20180216
  Transmission Date: 20180509
  Serious: Yes (Other)
  Sender: FDA-Public Use
  Company Number: None

PATIENT
  Age: 91 Year
  Sex: Female
  Weight: 65.77 kg

DRUGS (1)
  1. RA CREAM 0.05% [Suspect]
     Active Substance: TRETINOIN
     Indication: SKIN WRINKLING
     Dosage: PEA SIZED AMOUNT 3X/WK TOPICAL
     Route: 061
     Dates: start: 20180101

REACTIONS (1)
  - Application site pain [None]

NARRATIVE: CASE EVENT DATE: 20180112
